FAERS Safety Report 25085311 (Version 2)
Quarter: 2025Q4

REPORT INFORMATION
  Report Type: Spontaneous
  Country: EU (occurrence: EU)
  Receive Date: 20250317
  Receipt Date: 20251007
  Transmission Date: 20260118
  Serious: Yes (Other)
  Sender: MYLAN
  Company Number: None

PATIENT
  Age: 43 Year
  Sex: Female

DRUGS (8)
  1. METHOTREXATE [Suspect]
     Active Substance: METHOTREXATE
     Indication: Rheumatoid arthritis
     Dosage: UNK
  2. METHOTREXATE [Suspect]
     Active Substance: METHOTREXATE
     Dosage: UNK
     Route: 065
  3. METHOTREXATE [Suspect]
     Active Substance: METHOTREXATE
     Dosage: UNK
     Route: 065
  4. METHOTREXATE [Suspect]
     Active Substance: METHOTREXATE
     Dosage: UNK
  5. ERELZI [Suspect]
     Active Substance: ETANERCEPT-SZZS
     Indication: Rheumatoid arthritis
     Dosage: 1 DOSAGE FORM
  6. ERELZI [Suspect]
     Active Substance: ETANERCEPT-SZZS
     Dosage: 1 DOSAGE FORM
     Route: 058
  7. ERELZI [Suspect]
     Active Substance: ETANERCEPT-SZZS
     Dosage: 1 DOSAGE FORM
     Route: 058
  8. ERELZI [Suspect]
     Active Substance: ETANERCEPT-SZZS
     Dosage: 1 DOSAGE FORM

REACTIONS (1)
  - Malignant melanoma stage 0 [Recovered/Resolved with Sequelae]

NARRATIVE: CASE EVENT DATE: 20240701
